FAERS Safety Report 4665412-X (Version None)
Quarter: 2005Q2

REPORT INFORMATION
  Report Type: 
  Country: None (occurrence: None)
  Receive Date: 20050517
  Receipt Date: 20050502
  Transmission Date: 20051028
  Serious: Yes (Hospitalization)
  Sender: FDA-Public Use
  Company Number: US_0505116958

PATIENT
  Age: 0 Month
  Sex: Male
  Weight: 4 kg

DRUGS (3)
  1. HUMULIN N [Suspect]
     Dates: start: 19970101
  2. HUMULIN R [Suspect]
     Dates: start: 19970101
  3. HUMALOG [Suspect]
     Dates: start: 19970101

REACTIONS (4)
  - BLOOD GLUCOSE DECREASED [None]
  - CAESAREAN SECTION [None]
  - DRUG EXPOSURE DURING PREGNANCY [None]
  - NEONATAL DISORDER [None]
